FAERS Safety Report 22768175 (Version 2)
Quarter: 2023Q4

REPORT INFORMATION
  Report Type: Spontaneous
  Country: US (occurrence: US)
  Receive Date: 20230731
  Receipt Date: 20231003
  Transmission Date: 20240110
  Serious: No
  Sender: FDA-Public Use
  Company Number: US-SA-SAC20230726001344

PATIENT
  Age: 17 Year
  Sex: Female
  Weight: 59.4 kg

DRUGS (4)
  1. DUPIXENT [Suspect]
     Active Substance: DUPILUMAB
     Indication: Eosinophilic oesophagitis
     Dosage: 300 MG, QW
     Route: 058
     Dates: start: 20230711, end: 20230718
  2. ZOLOFT [Concomitant]
     Active Substance: SERTRALINE HYDROCHLORIDE
     Indication: Anxiety
     Dosage: 25 MG, QD
     Route: 048
  3. ZYRTEC [Concomitant]
     Active Substance: CETIRIZINE HYDROCHLORIDE
     Indication: Hypersensitivity
     Dosage: 10 MG, QD
     Route: 048
  4. RHINOCORT [Concomitant]
     Active Substance: BUDESONIDE
     Indication: Hypersensitivity
     Dosage: 32 UG
     Route: 045

REACTIONS (6)
  - Oropharyngeal pain [Recovered/Resolved]
  - Condition aggravated [Recovered/Resolved]
  - Paraesthesia [Unknown]
  - Dysphagia [Unknown]
  - Discomfort [Unknown]
  - Dysarthria [Unknown]

NARRATIVE: CASE EVENT DATE: 20230701
